FAERS Safety Report 23817090 (Version 1)
Quarter: 2024Q2

REPORT INFORMATION
  Report Type: Spontaneous
  Country: US (occurrence: US)
  Receive Date: 20240504
  Receipt Date: 20240504
  Transmission Date: 20240716
  Serious: No
  Sender: FDA-Public Use
  Company Number: US-Breckenridge Pharmaceutical, Inc.-2156504

PATIENT
  Age: 70 Year
  Sex: Male
  Weight: 145.45 kg

DRUGS (1)
  1. ASENAPINE [Suspect]
     Active Substance: ASENAPINE
     Indication: Bipolar disorder
     Route: 060

REACTIONS (3)
  - Product residue present [Not Recovered/Not Resolved]
  - Gingival discomfort [Unknown]
  - Glossitis [Unknown]
